FAERS Safety Report 9662908 (Version 1)
Quarter: 2013Q4

REPORT INFORMATION
  Report Type: Spontaneous
  Country: US (occurrence: US)
  Receive Date: 20131031
  Receipt Date: 20131031
  Transmission Date: 20140711
  Serious: No
  Sender: FDA-Public Use
  Company Number: US-PURDUE-USA-2011-0074530

PATIENT
  Sex: Female

DRUGS (4)
  1. OXYCONTIN (NDA 22-272) [Suspect]
     Indication: PAIN IN EXTREMITY
     Dosage: 80 MG, QID
     Dates: start: 201009
  2. OXYCONTIN (NDA 22-272) [Suspect]
     Indication: BACK PAIN
  3. OXYCONTIN (NDA 22-272) [Suspect]
     Indication: NECK PAIN
  4. OXYCONTIN (NDA 22-272) [Suspect]
     Indication: ARTHRALGIA

REACTIONS (6)
  - Medication residue present [Unknown]
  - Weight decreased [Unknown]
  - Frequent bowel movements [Unknown]
  - Headache [Unknown]
  - Inadequate analgesia [Unknown]
  - Constipation [Unknown]
